FAERS Safety Report 20408641 (Version 1)
Quarter: 2022Q1

REPORT INFORMATION
  Report Type: Spontaneous
  Country: CN (occurrence: None)
  Receive Date: 20220201
  Receipt Date: 20220201
  Transmission Date: 20220423
  Serious: Yes (Disabling)
  Sender: FDA-Public Use
  Company Number: CN-ROCHE-3014537

PATIENT
  Age: 51 Year
  Sex: Male
  Weight: 72 kg

DRUGS (2)
  1. CAPECITABINE [Suspect]
     Active Substance: CAPECITABINE
     Indication: Metastases to liver
     Route: 048
     Dates: start: 20211221
  2. OXALIPLATIN [Concomitant]
     Active Substance: OXALIPLATIN
     Indication: Metastases to liver
     Route: 041
     Dates: start: 20211221

REACTIONS (4)
  - Erythema [Not Recovered/Not Resolved]
  - Dysaesthesia [Not Recovered/Not Resolved]
  - Palmar-plantar erythrodysaesthesia syndrome [Not Recovered/Not Resolved]
  - Off label use [Unknown]

NARRATIVE: CASE EVENT DATE: 20220101
